FAERS Safety Report 11769109 (Version 1)
Quarter: 2015Q4

REPORT INFORMATION
  Report Type: Spontaneous
  Country: US (occurrence: US)
  Receive Date: 20151123
  Receipt Date: 20151123
  Transmission Date: 20160304
  Serious: No
  Sender: FDA-Public Use
  Company Number: US-BAYER-2015-473857

PATIENT
  Sex: Female

DRUGS (1)
  1. MIRALAX [Suspect]
     Active Substance: POLYETHYLENE GLYCOL 3350
     Dosage: 1 DF, ONCE
     Route: 048

REACTIONS (3)
  - Abdominal pain upper [None]
  - Abdominal distension [None]
  - Feeling abnormal [None]

NARRATIVE: CASE EVENT DATE: 20151119
